FAERS Safety Report 13527534 (Version 1)
Quarter: 2017Q2

REPORT INFORMATION
  Report Type: Spontaneous
  Country: HR (occurrence: HR)
  Receive Date: 20170509
  Receipt Date: 20170509
  Transmission Date: 20170830
  Serious: Yes (Life-Threatening, Hospitalization, Other)
  Sender: FDA-Public Use
  Company Number: HR-JNJFOC-20170507453

PATIENT
  Age: 81 Year
  Sex: Male
  Weight: 76 kg

DRUGS (4)
  1. HALDOL [Suspect]
     Active Substance: HALOPERIDOL
     Indication: DEMENTIA
     Route: 048
     Dates: start: 20170322, end: 20170329
  2. NORMABEL [Suspect]
     Active Substance: DIAZEPAM
     Indication: PRODUCT USED FOR UNKNOWN INDICATION
     Route: 065
     Dates: start: 20170322, end: 20170329
  3. SANVAL [Suspect]
     Active Substance: ZOLPIDEM TARTRATE
     Indication: PRODUCT USED FOR UNKNOWN INDICATION
     Dosage: 1-2 EVENING
     Route: 065
     Dates: start: 20170322, end: 20170329
  4. MARTEFARIN [Suspect]
     Active Substance: WARFARIN
     Indication: PRODUCT USED FOR UNKNOWN INDICATION
     Route: 065
     Dates: start: 20170325

REACTIONS (6)
  - Musculoskeletal stiffness [Recovered/Resolved]
  - Delirium [Recovered/Resolved]
  - Dyskinesia [Recovered/Resolved]
  - Insomnia [Recovered/Resolved]
  - Bradykinesia [Recovered/Resolved]
  - Salivary hypersecretion [Recovered/Resolved]

NARRATIVE: CASE EVENT DATE: 20170323
